FAERS Safety Report 24026909 (Version 2)
Quarter: 2024Q3

REPORT INFORMATION
  Report Type: Report from Study
  Country: CN (occurrence: CN)
  Receive Date: 20240628
  Receipt Date: 20240710
  Transmission Date: 20241016
  Serious: No
  Sender: ROCHE
  Company Number: CN-ROCHE-3486703

PATIENT
  Age: 60 Year
  Sex: Female
  Weight: 75.0 kg

DRUGS (12)
  1. ALECTINIB [Suspect]
     Active Substance: ALECTINIB
     Indication: Non-small cell lung cancer metastatic
     Route: 048
     Dates: start: 20200921
  2. ALECTINIB [Suspect]
     Active Substance: ALECTINIB
     Route: 048
     Dates: start: 20210723
  3. COMPOUND YIGANLING CAPSULE [Concomitant]
     Route: 048
     Dates: start: 20210722
  4. COMPOUND YIGANLING CAPSULE [Concomitant]
     Route: 048
     Dates: start: 20210722
  5. COMPOUND YIGANLING CAPSULE [Concomitant]
     Route: 048
     Dates: start: 20230915
  6. RABEPRAZOLE [Concomitant]
     Active Substance: RABEPRAZOLE
     Route: 048
     Dates: start: 20211120
  7. THYMOPEPTIDES [Concomitant]
     Route: 048
     Dates: start: 20220513
  8. UBENIMEX [Concomitant]
     Active Substance: UBENIMEX
     Route: 048
     Dates: start: 20221113
  9. LEVOTHYROXINE SODIUM [Concomitant]
     Active Substance: LEVOTHYROXINE SODIUM
     Route: 048
     Dates: start: 20220925
  10. POTASSIUM CHLORIDE [Concomitant]
     Active Substance: POTASSIUM CHLORIDE
     Route: 048
     Dates: start: 20230912, end: 20230915
  11. HERBALS\DIAMMONIUM GLYCYRRHIZINATE [Concomitant]
     Active Substance: HERBALS\DIAMMONIUM GLYCYRRHIZINATE
     Route: 048
     Dates: start: 20230708
  12. OMEPRAZOLE [Concomitant]
     Active Substance: OMEPRAZOLE
     Route: 048
     Dates: start: 20220925

REACTIONS (2)
  - Blood creatine phosphokinase increased [Not Recovered/Not Resolved]
  - Blood alkaline phosphatase increased [Not Recovered/Not Resolved]

NARRATIVE: CASE EVENT DATE: 20230707
